FAERS Safety Report 6290354-6 (Version None)
Quarter: 2009Q3

REPORT INFORMATION
  Report Type: 
  Country: None (occurrence: None)
  Receive Date: 20090730
  Receipt Date: 20090309
  Transmission Date: 20100115
  Serious: Yes (Other)
  Sender: FDA-Public Use
  Company Number: US-BRISTOL-MYERS SQUIBB COMPANY-14535975

PATIENT

DRUGS (2)
  1. COUMADIN [Suspect]
  2. CELEBREX [Suspect]
     Dosage: CAPSULE;HARD.

REACTIONS (1)
  - CEREBRAL HAEMORRHAGE [None]
